FAERS Safety Report 19256867 (Version 2)
Quarter: 2021Q3

REPORT INFORMATION
  Report Type: Spontaneous
  Country: US (occurrence: US)
  Receive Date: 20210513
  Receipt Date: 20210721
  Transmission Date: 20211014
  Serious: Yes (Hospitalization)
  Sender: FDA-Public Use
  Company Number: US-TEVA-2021-US-1910103

PATIENT
  Age: 14 Year
  Sex: Female

DRUGS (8)
  1. IMMUNOGLOBULIN G [Concomitant]
     Active Substance: HUMAN IMMUNOGLOBULIN G
     Indication: INFLAMMATION
     Route: 042
  2. REMDESIVIR. [Concomitant]
     Active Substance: REMDESIVIR
     Indication: INFLAMMATION
     Route: 065
  3. METHYLPREDNISOLONE. [Suspect]
     Active Substance: METHYLPREDNISOLONE
     Indication: INFLAMMATION
     Route: 065
  4. EPINEPHRINE. [Concomitant]
     Active Substance: EPINEPHRINE
     Indication: DISTRIBUTIVE SHOCK
     Dosage: INOTROPIC SUPPORT
     Route: 065
  5. EPINEPHRINE. [Concomitant]
     Active Substance: EPINEPHRINE
     Indication: HYPOTENSION
  6. NOREPINEPHRINE. [Concomitant]
     Active Substance: NOREPINEPHRINE
     Indication: DISTRIBUTIVE SHOCK
     Dosage: INOTROPIC SUPPORT
     Route: 065
  7. NOREPINEPHRINE. [Concomitant]
     Active Substance: NOREPINEPHRINE
     Indication: HYPOTENSION
  8. INSULIN [Concomitant]
     Active Substance: INSULIN NOS
     Indication: RESUSCITATION
     Route: 050

REACTIONS (2)
  - Rebound effect [Recovered/Resolved]
  - Renal impairment [Recovered/Resolved]
